FAERS Safety Report 23168090 (Version 1)
Quarter: 2023Q4

REPORT INFORMATION
  Report Type: Spontaneous
  Country: CA (occurrence: CA)
  Receive Date: 20231109
  Receipt Date: 20231109
  Transmission Date: 20240110
  Serious: Yes (Hospitalization)
  Sender: FDA-Public Use
  Company Number: CA-002147023-PHHY2013CA014754

PATIENT
  Age: 62 Year
  Sex: Male

DRUGS (13)
  1. AMMONIUM CHLORIDE [Concomitant]
     Active Substance: AMMONIUM CHLORIDE
     Indication: Product used for unknown indication
     Dosage: UNK
     Route: 065
  2. DILTIAZEM [Concomitant]
     Active Substance: DILTIAZEM
     Indication: Product used for unknown indication
     Dosage: UNK
     Route: 065
  3. FENOFIBRATE [Concomitant]
     Active Substance: FENOFIBRATE
     Indication: Product used for unknown indication
     Dosage: UNK
     Route: 065
  4. METFORMIN [Concomitant]
     Active Substance: METFORMIN HYDROCHLORIDE
     Indication: Product used for unknown indication
     Dosage: UNK
     Route: 065
  5. RAMIPRIL [Concomitant]
     Active Substance: RAMIPRIL
     Indication: Product used for unknown indication
     Dosage: UNK
     Route: 065
  6. GLEEVEC [Interacting]
     Active Substance: IMATINIB MESYLATE
     Dosage: 200 MG, BID
     Route: 048
     Dates: start: 201108
  7. GLEEVEC [Interacting]
     Active Substance: IMATINIB MESYLATE
     Dosage: 200 MG, BID
     Route: 048
  8. GLEEVEC [Interacting]
     Active Substance: IMATINIB MESYLATE
     Dosage: 200 MG, BID
     Route: 048
  9. GLEEVEC [Interacting]
     Active Substance: IMATINIB MESYLATE
     Dosage: 200 MG, BID
     Route: 048
  10. GLEEVEC [Interacting]
     Active Substance: IMATINIB MESYLATE
     Indication: Chronic myeloid leukaemia
     Dosage: 400 MG, QD
     Route: 048
  11. GLEEVEC [Interacting]
     Active Substance: IMATINIB MESYLATE
     Dosage: UNK
     Route: 048
     Dates: start: 20110801
  12. GLEEVEC [Interacting]
     Active Substance: IMATINIB MESYLATE
     Dosage: UNK
     Route: 048
  13. METOPROLOL [Interacting]
     Active Substance: METOPROLOL
     Indication: Blood pressure measurement
     Dosage: UNK
     Route: 065

REACTIONS (8)
  - Drug interaction [Recovered/Resolved]
  - Intestinal obstruction [Recovered/Resolved]
  - Dry skin [Recovered/Resolved]
  - Fatigue [Recovered/Resolved]
  - Alopecia [Recovered/Resolved]
  - Photosensitivity reaction [Recovered/Resolved]
  - Hypoaesthesia [Recovered/Resolved]
  - Paraesthesia [Recovered/Resolved]

NARRATIVE: CASE EVENT DATE: 20110801
